FAERS Safety Report 6692541-1 (Version None)
Quarter: 2010Q2

REPORT INFORMATION
  Report Type: 
  Country: None (occurrence: None)
  Receive Date: 20100422
  Receipt Date: 20100405
  Transmission Date: 20101027
  Serious: Yes (Other)
  Sender: FDA-Public Use
  Company Number: ES-ELI_LILLY_AND_COMPANY-ES201004001018

PATIENT
  Sex: Female

DRUGS (9)
  1. FORTEO [Suspect]
     Indication: OSTEOPOROSIS
     Dosage: 20 UG, DAILY (1/D)
     Route: 058
     Dates: start: 20100209
  2. MASTICAL D [Concomitant]
     Indication: OSTEOPOROSIS
     Dosage: UNK, 2/D
     Route: 048
  3. HIDROXIL B12 B6 B1 [Concomitant]
     Indication: OSTEOPOROSIS
     Dosage: UNK, DAILY (1/D)
     Route: 048
  4. ZALDIAR [Concomitant]
     Indication: PAIN
     Dosage: 325 MG, 2/D
     Route: 048
  5. DEPRELIO [Concomitant]
     Dosage: UNK, UNKNOWN
     Route: 065
  6. GABAPENTIN [Concomitant]
     Dosage: 600 MG, 2/D
     Route: 048
  7. HIDROFEROL [Concomitant]
     Dosage: 0.266 MG, MONTHLY (1/M)
     Route: 048
  8. DURAGESIC-100 [Concomitant]
     Dosage: 50 UG, OTHER
     Route: 065
  9. OMEPRAZOLE [Concomitant]
     Dosage: UNK, AS NEEDED
     Route: 065

REACTIONS (3)
  - ASPHYXIA [None]
  - HOT FLUSH [None]
  - STRESS ULCER [None]
